FAERS Safety Report 9868939 (Version 2)
Quarter: 2014Q1

REPORT INFORMATION
  Report Type: Report from Study
  Country: VE (occurrence: VE)
  Receive Date: 20140205
  Receipt Date: 20140320
  Transmission Date: 20141002
  Serious: Yes (Other)
  Sender: FDA-Public Use
  Company Number: VE-ROCHE-1343394

PATIENT
  Age: 10 Year
  Sex: Female
  Weight: 56.07 kg

DRUGS (2)
  1. XOLAIR [Suspect]
     Indication: ASTHMA
     Dosage: CONCENTRATION: 01 CC/DAILY
     Route: 058
     Dates: start: 201311, end: 201311
  2. XOLAIR [Suspect]
     Route: 058
     Dates: start: 201311

REACTIONS (2)
  - Dengue fever [Recovered/Resolved]
  - Hepatitis [Recovered/Resolved]
